FAERS Safety Report 6093552-X (Version None)
Quarter: 2009Q1

REPORT INFORMATION
  Report Type: 
  Country: None (occurrence: None)
  Receive Date: 20090226
  Receipt Date: 20090126
  Transmission Date: 20090719
  Serious: No
  Sender: FDA-Public Use
  Company Number: US-BAYER-200912077NA

PATIENT
  Age: 54 Year
  Sex: Female
  Weight: 66 kg

DRUGS (2)
  1. CLIMARA PRO [Suspect]
     Indication: HOT FLUSH
     Route: 062
  2. EFFEXOR XR [Concomitant]

REACTIONS (1)
  - ALOPECIA [None]
